FAERS Safety Report 22228899 (Version 1)
Quarter: 2023Q2

REPORT INFORMATION
  Report Type: Spontaneous
  Country: US (occurrence: None)
  Receive Date: 20230418
  Receipt Date: 20230418
  Transmission Date: 20230721
  Serious: Yes (unspecified)
  Sender: FDA-Public Use
  Company Number: None

PATIENT
  Sex: Female

DRUGS (2)
  1. ANTIBACTERIAL BANDAGES [Suspect]
     Active Substance: BENZALKONIUM CHLORIDE
  2. BENZALKONIUM CHLORIDE [Suspect]
     Active Substance: BENZALKONIUM CHLORIDE

REACTIONS (3)
  - Chemical burn [None]
  - Device leakage [None]
  - Product complaint [None]
